FAERS Safety Report 20541042 (Version 3)
Quarter: 2022Q2

REPORT INFORMATION
  Report Type: Spontaneous
  Country: US (occurrence: US)
  Receive Date: 20220302
  Receipt Date: 20220525
  Transmission Date: 20220721
  Serious: Yes (Hospitalization)
  Sender: FDA-Public Use
  Company Number: US-PFIZER INC-202200307772

PATIENT
  Age: 80 Year
  Sex: Male

DRUGS (1)
  1. INLYTA [Suspect]
     Active Substance: AXITINIB
     Dosage: 5 MG
     Dates: start: 20220125, end: 20220217

REACTIONS (6)
  - Asthenia [Unknown]
  - Confusional state [Unknown]
  - Lethargy [Unknown]
  - Fatigue [Unknown]
  - Somnolence [Unknown]
  - Therapy change [Unknown]
